FAERS Safety Report 23140023 (Version 3)
Quarter: 2025Q1

REPORT INFORMATION
  Report Type: Spontaneous
  Country: US (occurrence: US)
  Receive Date: 20231102
  Receipt Date: 20250123
  Transmission Date: 20250408
  Serious: No
  Sender: PFIZER
  Company Number: US-PFIZER INC-PV202300178242

PATIENT
  Age: 69 Year
  Sex: Female

DRUGS (2)
  1. IBRANCE [Suspect]
     Active Substance: PALBOCICLIB
     Route: 048
  2. LIPITOR [Concomitant]
     Active Substance: ATORVASTATIN CALCIUM
     Dosage: 10 MG, DAILY (USE 1 TABLET IN THE MOUTH OR THROAT DAILY)
     Route: 048
     Dates: start: 20240903

REACTIONS (3)
  - Cough [Unknown]
  - Fatigue [Unknown]
  - Alopecia [Unknown]
